FAERS Safety Report 17251104 (Version 1)
Quarter: 2020Q1

REPORT INFORMATION
  Report Type: Spontaneous
  Country: US (occurrence: US)
  Receive Date: 20200109
  Receipt Date: 20200109
  Transmission Date: 20200409
  Serious: Yes (Death, Hospitalization, Other)
  Sender: FDA-Public Use
  Company Number: US-GLAXOSMITHKLINE-US2020GSK001214

PATIENT
  Age: 54 Year
  Sex: Male

DRUGS (5)
  1. SACUBITRIL + VALSARTAN [Suspect]
     Active Substance: SACUBITRIL\VALSARTAN
     Dosage: UNK
     Route: 048
  2. DIPHENHYDRAMINE + IBUPROFEN [Suspect]
     Active Substance: DIPHENHYDRAMINE\IBUPROFEN
     Dosage: UNK
     Route: 048
  3. COLCHICINE. [Suspect]
     Active Substance: COLCHICINE
     Dosage: UNK
     Route: 048
  4. CARVEDILOL. [Suspect]
     Active Substance: CARVEDILOL
     Dosage: UNK
     Route: 048
  5. RIVAROXABAN [Suspect]
     Active Substance: RIVAROXABAN
     Dosage: UNK
     Route: 048

REACTIONS (1)
  - Suspected suicide [Fatal]
